FAERS Safety Report 6150690-0 (Version None)
Quarter: 2009Q2

REPORT INFORMATION
  Report Type: 
  Country: None (occurrence: None)
  Receive Date: 20090409
  Receipt Date: 20090401
  Transmission Date: 20091009
  Serious: Yes (Other)
  Sender: FDA-Public Use
  Company Number: GR-BAXTER-2008BH003560

PATIENT
  Age: 50 Year
  Sex: Female

DRUGS (14)
  1. CYCLOPHOSPHAMIDE [Suspect]
     Indication: BREAST CANCER
     Route: 042
     Dates: start: 20071029, end: 20071029
  2. CYCLOPHOSPHAMIDE [Suspect]
     Route: 042
     Dates: start: 20071112, end: 20071112
  3. CYCLOPHOSPHAMIDE [Suspect]
     Route: 042
     Dates: start: 20071126, end: 20071126
  4. METHOTREXATE [Suspect]
     Indication: BREAST CANCER
     Route: 042
     Dates: start: 20071029, end: 20071029
  5. METHOTREXATE [Suspect]
     Route: 042
     Dates: start: 20071112, end: 20071112
  6. METHOTREXATE [Suspect]
     Route: 042
     Dates: start: 20071126, end: 20071126
  7. FLUOROURACIL CAP [Suspect]
     Indication: BREAST CANCER
     Route: 042
     Dates: start: 20071029, end: 20071029
  8. FLUOROURACIL CAP [Suspect]
     Route: 042
     Dates: start: 20071112, end: 20071112
  9. FLUOROURACIL CAP [Suspect]
     Route: 042
     Dates: start: 20071126, end: 20071126
  10. ZANTAC [Concomitant]
     Indication: PROPHYLAXIS
     Route: 042
  11. ZOFRON [Concomitant]
     Indication: PROPHYLAXIS
     Route: 042
  12. FENISTIL [Concomitant]
     Indication: PROPHYLAXIS
     Route: 065
  13. NEULASTA [Concomitant]
     Indication: DRUG USE FOR UNKNOWN INDICATION
     Route: 065
  14. DEXAMETHASONE 4MG TAB [Concomitant]
     Indication: PROPHYLAXIS
     Route: 042

REACTIONS (1)
  - ALANINE AMINOTRANSFERASE ABNORMAL [None]
